FAERS Safety Report 10811809 (Version 1)
Quarter: 2015Q1

REPORT INFORMATION
  Report Type: Spontaneous
  Country: US (occurrence: None)
  Receive Date: 20150213
  Receipt Date: 20150213
  Transmission Date: 20150721
  Serious: Yes (Hospitalization)
  Sender: FDA-Public Use
  Company Number: None

PATIENT
  Age: 2 Year
  Sex: Female
  Weight: 16.4 kg

DRUGS (9)
  1. CEFEPIME [Concomitant]
     Active Substance: CEFEPIME\CEFEPIME HYDROCHLORIDE
  2. CYTARABINE. [Suspect]
     Active Substance: CYTARABINE
  3. MITOXANTHRONE [Suspect]
     Active Substance: MITOXANTRONE HYDROCHLORIDE
  4. BORTEZOMIB [Concomitant]
     Active Substance: BORTEZOMIB
  5. METRONIDAZOLE. [Concomitant]
     Active Substance: METRONIDAZOLE
  6. BORTEZOMIB [Suspect]
     Active Substance: BORTEZOMIB
  7. MITOXANTHRONE [Concomitant]
     Active Substance: MITOXANTRONE HYDROCHLORIDE
  8. CASPOFUNGIN ACETATE [Suspect]
     Active Substance: CASPOFUNGIN ACETATE
     Dates: end: 20150120
  9. CYTARABINE. [Concomitant]
     Active Substance: CYTARABINE

REACTIONS (3)
  - Neutrophil count decreased [None]
  - Clostridium difficile infection [None]
  - Bronchopulmonary aspergillosis [None]

NARRATIVE: CASE EVENT DATE: 20150104
